FAERS Safety Report 17746918 (Version 1)
Quarter: 2020Q2

REPORT INFORMATION
  Report Type: Spontaneous
  Country: US (occurrence: US)
  Receive Date: 20200505
  Receipt Date: 20200505
  Transmission Date: 20200714
  Serious: Yes (Other)
  Sender: FDA-Public Use
  Company Number: US-FAMILY DOLLAR SERVICES, INC-2083506

PATIENT
  Sex: Female

DRUGS (1)
  1. NIGHT TIME COUGH [Suspect]
     Active Substance: DEXTROMETHORPHAN HYDROBROMIDE\DOXYLAMINE SUCCINATE
     Indication: NASOPHARYNGITIS
     Route: 048

REACTIONS (3)
  - Rash [Recovered/Resolved]
  - Lip swelling [Recovered/Resolved]
  - Mouth swelling [Recovered/Resolved]
